FAERS Safety Report 6572163-3 (Version None)
Quarter: 2010Q1

REPORT INFORMATION
  Report Type: 
  Country: None (occurrence: None)
  Receive Date: 20100205
  Receipt Date: 20091207
  Transmission Date: 20100710
  Serious: Yes (Life-Threatening)
  Sender: FDA-Public Use
  Company Number: B0609349A

PATIENT
  Sex: Male
  Weight: 50 kg

DRUGS (18)
  1. ZANAMIVIR [Suspect]
     Indication: H1N1 INFLUENZA
     Route: 042
     Dates: start: 20091128, end: 20091128
  2. NIMBEX [Concomitant]
     Dosage: .3MGKH UNKNOWN
     Route: 042
     Dates: start: 20091121, end: 20091128
  3. LASILIX [Concomitant]
     Dosage: 100MG PER DAY
     Route: 042
     Dates: start: 20091124
  4. KETAMINE HCL [Concomitant]
     Dosage: 3MGKH PER DAY
     Route: 042
     Dates: start: 20091121
  5. HYPNOVEL [Concomitant]
     Dosage: .2MGKH PER DAY
     Route: 042
     Dates: start: 20091121
  6. SUFENTA [Concomitant]
     Dosage: .3MGKH PER DAY
     Route: 042
     Dates: start: 20091121
  7. TAMIFLU [Concomitant]
     Route: 048
     Dates: start: 20091121
  8. DOBUTAMINE HCL [Concomitant]
     Route: 042
     Dates: start: 20091126, end: 20091127
  9. CLAFORAN [Concomitant]
     Dosage: 3G THREE TIMES PER DAY
     Route: 042
     Dates: start: 20091121, end: 20091124
  10. ROCEPHIN [Concomitant]
     Dosage: 2G PER DAY
     Route: 042
     Dates: start: 20091124
  11. MILRINONE [Concomitant]
     Route: 042
     Dates: start: 20091125
  12. LOXEN [Concomitant]
     Route: 042
     Dates: start: 20091127
  13. NORADRENALINE [Concomitant]
     Route: 042
     Dates: start: 20091122, end: 20091123
  14. NEXIUM [Concomitant]
     Dosage: 20MG PER DAY
     Route: 042
     Dates: start: 20091121
  15. FORLAX [Concomitant]
     Dosage: 10G TWICE PER DAY
     Route: 048
     Dates: start: 20091123
  16. CIPROFLOXACIN HCL [Concomitant]
     Dosage: 600MG TWICE PER DAY
     Route: 042
     Dates: start: 20091121, end: 20091124
  17. BIOCIDAN [Concomitant]
     Route: 061
  18. VITAMIN A [Concomitant]
     Route: 061

REACTIONS (8)
  - ALANINE AMINOTRANSFERASE INCREASED [None]
  - ASPARTATE AMINOTRANSFERASE INCREASED [None]
  - BLOOD CREATININE INCREASED [None]
  - CHOLESTASIS [None]
  - DRUG TOXICITY [None]
  - GAMMA-GLUTAMYLTRANSFERASE INCREASED [None]
  - HEPATOCELLULAR INJURY [None]
  - RENAL FAILURE [None]
